FAERS Safety Report 4893476-7 (Version None)
Quarter: 2006Q1

REPORT INFORMATION
  Report Type: 
  Country: None (occurrence: None)
  Receive Date: 20060127
  Receipt Date: 20050520
  Transmission Date: 20060701
  Serious: No
  Sender: FDA-Public Use
  Company Number: US-BRISTOL-MYERS SQUIBB COMPANY-12976304

PATIENT
  Age: 79 Year
  Sex: Male
  Weight: 77 kg

DRUGS (3)
  1. KENALOG [Suspect]
     Indication: NEUROPATHY PERIPHERAL
     Dates: start: 20050506, end: 20050506
  2. DEXAMETHASONE TAB [Concomitant]
     Indication: NEUROPATHY PERIPHERAL
     Dates: start: 20050506, end: 20050506
  3. LEVOXYL [Concomitant]

REACTIONS (1)
  - RASH PRURITIC [None]
